FAERS Safety Report 24579351 (Version 1)
Quarter: 2024Q4

REPORT INFORMATION
  Report Type: Spontaneous
  Country: US (occurrence: US)
  Receive Date: 20241105
  Receipt Date: 20241105
  Transmission Date: 20250115
  Serious: No
  Sender: EMD SERONO INC
  Company Number: US-Merck Healthcare KGaA-2024056569

PATIENT
  Age: 64 Year
  Sex: Female

DRUGS (1)
  1. SEROSTIM [Suspect]
     Active Substance: SOMATROPIN
     Indication: Cachexia
     Dosage: EXPIRY DATE: 31 JAN 2027
     Route: 058

REACTIONS (2)
  - Joint stiffness [Unknown]
  - Arthralgia [Unknown]
